FAERS Safety Report 8957584 (Version 1)
Quarter: 2012Q4

REPORT INFORMATION
  Report Type: 
  Country: GB (occurrence: GB)
  Receive Date: 20121210
  Receipt Date: 20121210
  Transmission Date: 20130627
  Serious: Yes (Hospitalization, Other)
  Sender: FDA-Public Use
  Company Number: GB-PFIZER INC-2012305915

PATIENT
  Age: 66 Year
  Sex: Male
  Weight: 95 kg

DRUGS (8)
  1. GENOTROPIN [Suspect]
     Dosage: 0.4 mg, 1x/day, 7 injections/week
     Route: 058
     Dates: start: 20010801, end: 20030717
  2. LEVOTHYROXINE [Concomitant]
     Indication: THYROID DISORDER
     Dosage: UNK
     Dates: start: 19980715
  3. LEVOTHYROXINE [Concomitant]
     Indication: PRIMARY HYPOTHYROIDISM
  4. TESTOSTERONE [Concomitant]
     Indication: LUTEINISING HORMONE DEFICIENCY
     Dosage: UNK
     Dates: start: 19980715
  5. TESTOSTERONE [Concomitant]
     Indication: FOLLICLE-STIMULATING HORMONE DEFICIENCY
  6. TESTOSTERONE [Concomitant]
     Indication: TESTICULAR HYPOGONADISM
  7. FERROUS SULFATE [Concomitant]
     Indication: ANAEMIA
     Dosage: UNK
     Dates: start: 20020801
  8. CELECOXIB [Concomitant]
     Indication: ARTHRITIS
     Dosage: UNK
     Dates: start: 20030115

REACTIONS (1)
  - Pituitary tumour benign [Recovered/Resolved]
